FAERS Safety Report 5197808-4 (Version None)
Quarter: 2006Q4

REPORT INFORMATION
  Report Type: 
  Country: None (occurrence: None)
  Receive Date: 20061228
  Receipt Date: 20061219
  Transmission Date: 20070319
  Serious: Yes (Hospitalization)
  Sender: FDA-Public Use
  Company Number: 2006SP008799

PATIENT
  Age: 76 Year
  Sex: Male

DRUGS (3)
  1. DESLORATADINE [Suspect]
     Indication: RHINITIS
     Dosage: 1 DF, BID; PO
     Route: 048
     Dates: start: 20061205, end: 20061207
  2. CETIRIZINE HCL [Suspect]
     Dosage: 1 DF,
     Dates: start: 20061205, end: 20061206
  3. CETRIZINE DICHLORHYDRATE [Concomitant]

REACTIONS (1)
  - ATRIAL FIBRILLATION [None]
